FAERS Safety Report 9190112 (Version 1)
Quarter: 2013Q1

REPORT INFORMATION
  Report Type: Spontaneous
  Country: US (occurrence: US)
  Receive Date: 20130326
  Receipt Date: 20130326
  Transmission Date: 20140127
  Serious: No
  Sender: FDA-Public Use
  Company Number: US-PFIZER INC-2013093296

PATIENT
  Age: 61 Year
  Sex: Male
  Weight: 95.24 kg

DRUGS (5)
  1. VIAGRA [Suspect]
     Indication: ERECTILE DYSFUNCTION
     Dosage: 50 MG, AS NEEDED
     Route: 048
     Dates: start: 201302
  2. EPICON [Concomitant]
     Indication: HYPERTENSION
     Dosage: UNK
  3. WARFARIN [Concomitant]
     Indication: HYPERTENSION
     Dosage: 7.5 MG, 1X/DAY
  4. SIMVASTATIN [Concomitant]
     Indication: HIV INFECTION
     Dosage: 40 MG, UNK
  5. SUSTIVA [Concomitant]
     Indication: HIV INFECTION
     Dosage: 600 MG, UNK

REACTIONS (1)
  - Drug ineffective [Unknown]
